FAERS Safety Report 7486048-1 (Version None)
Quarter: 2011Q2

REPORT INFORMATION
  Report Type: 
  Country: None (occurrence: None)
  Receive Date: 20110517
  Receipt Date: 20110512
  Transmission Date: 20111010
  Serious: Yes (Other)
  Sender: FDA-Public Use
  Company Number: PT-PFIZER INC-2011101971

PATIENT
  Age: 65 Year
  Sex: Female

DRUGS (5)
  1. TRAMADOL HYDROCHLORIDE [Concomitant]
     Dosage: UNK
  2. CARVEDILOL [Concomitant]
     Dosage: UNK
  3. RANITIDINE [Concomitant]
     Dosage: UNK
  4. ZIPRASIDONE HCL [Suspect]
     Indication: PSYCHOTIC DISORDER
     Dosage: 40 MG, 1X/DAY
     Dates: start: 20110416
  5. MORPHINE [Concomitant]
     Dosage: UNK
     Dates: end: 20110419

REACTIONS (5)
  - FATIGUE [None]
  - INCORRECT ROUTE OF DRUG ADMINISTRATION [None]
  - UNRESPONSIVE TO STIMULI [None]
  - ASTHENIA [None]
  - SOMNOLENCE [None]
